FAERS Safety Report 8834588 (Version 2)
Quarter: 2012Q4

REPORT INFORMATION
  Report Type: Report from Study
  Country: DE (occurrence: DE)
  Receive Date: 20121010
  Receipt Date: 20121022
  Transmission Date: 20130627
  Serious: Yes (Hospitalization)
  Sender: FDA-Public Use
  Company Number: DE-TEVA-362802GER

PATIENT
  Age: 59 Year
  Sex: Female
  Weight: 47 kg

DRUGS (8)
  1. MYOCET [Suspect]
     Indication: BREAST CANCER
     Route: 042
     Dates: start: 20120628, end: 20120911
  2. MYOCET [Suspect]
     Route: 042
     Dates: start: 20120912, end: 20121007
  3. PACLITAXEL [Suspect]
     Indication: BREAST CANCER
     Dates: start: 20120628, end: 20120911
  4. PACLITAXEL [Suspect]
     Route: 042
     Dates: start: 20120912, end: 20121007
  5. AVASTIN [Suspect]
     Indication: BREAST CANCER
     Route: 042
     Dates: start: 20120628, end: 20121007
  6. TANTUM VERDE [Concomitant]
     Dates: start: 20120801
  7. CHLORHEXAMED [Concomitant]
     Dates: start: 20120705
  8. FERRO SANOL [Concomitant]
     Dosage: 2 Dosage forms Daily;
     Dates: start: 20120915

REACTIONS (1)
  - Stomatitis [Recovered/Resolved]
